FAERS Safety Report 8521066-3 (Version None)
Quarter: 2012Q3

REPORT INFORMATION
  Report Type: 
  Country: None (occurrence: None)
  Receive Date: 20120719
  Receipt Date: 20120705
  Transmission Date: 20120928
  Serious: Yes (Death)
  Sender: FDA-Public Use
  Company Number: US-MYLANLABS-2010S1005987

PATIENT
  Age: 35 Year
  Sex: Male
  Weight: 108.86 kg

DRUGS (14)
  1. FENTANYL-100 [Suspect]
     Dosage: Q 72 HOURS
     Route: 062
     Dates: start: 20080412, end: 20080417
  2. MULTI-VITAMINS [Concomitant]
  3. OMEPRAZOLE [Concomitant]
  4. FENTANYL-100 [Suspect]
     Indication: PAIN
     Dosage: Q 72 HOURS
     Route: 062
     Dates: start: 20080409
  5. FENTANYL-100 [Suspect]
     Indication: ABDOMINAL PAIN
     Dosage: Q 72 HOURS
     Route: 062
     Dates: start: 20080409
  6. CEPHALEXIN [Concomitant]
     Dates: start: 20080405
  7. HYDROMORPHONE HCL [Concomitant]
  8. CLARINEX /01202601/ [Concomitant]
  9. FOLIC ACID [Concomitant]
     Dates: start: 20080405
  10. ALPRAZOLAM [Concomitant]
  11. DIOVAN [Concomitant]
  12. FENTANYL-100 [Suspect]
     Dosage: Q 72 HOURS
     Route: 062
     Dates: start: 20080412, end: 20080417
  13. THIAMINE [Concomitant]
  14. CLONAZEPAM [Concomitant]

REACTIONS (6)
  - EUPHORIC MOOD [None]
  - INCORRECT DOSE ADMINISTERED [None]
  - DRUG PRESCRIBING ERROR [None]
  - DYSARTHRIA [None]
  - HYPERHIDROSIS [None]
  - TOXICITY TO VARIOUS AGENTS [None]
